FAERS Safety Report 11625356 (Version 2)
Quarter: 2017Q1

REPORT INFORMATION
  Report Type: Spontaneous
  Country: PE (occurrence: PE)
  Receive Date: 20151013
  Receipt Date: 20170126
  Transmission Date: 20170428
  Serious: Yes (Other)
  Sender: FDA-Public Use
  Company Number: PE-PFIZER INC-2015337048

PATIENT
  Age: 86 Year
  Sex: Female

DRUGS (1)
  1. AROMASIN [Suspect]
     Active Substance: EXEMESTANE
     Dosage: UNK

REACTIONS (9)
  - Blindness [Unknown]
  - Cardiac disorder [Unknown]
  - Intraocular pressure increased [Unknown]
  - Hypertension [Unknown]
  - Eye infection [Unknown]
  - Eye pain [Unknown]
  - Pulmonary fibrosis [Unknown]
  - Retinal vascular thrombosis [Unknown]
  - Thyroid disorder [Unknown]
